FAERS Safety Report 16632875 (Version 1)
Quarter: 2019Q3

REPORT INFORMATION
  Report Type: Spontaneous
  Country: US (occurrence: US)
  Receive Date: 20190725
  Receipt Date: 20190725
  Transmission Date: 20191004
  Serious: No
  Sender: FDA-Public Use
  Company Number: US-PFIZER INC-2019313406

PATIENT
  Age: 54 Year
  Sex: Female

DRUGS (1)
  1. GENOTROPIN [Suspect]
     Active Substance: SOMATROPIN
     Indication: BLOOD GROWTH HORMONE
     Dosage: 0.6 MG, DAILY
     Dates: end: 2017

REACTIONS (5)
  - Anxiety [Unknown]
  - Bone density decreased [Unknown]
  - Weight decreased [Unknown]
  - Blood triglycerides increased [Unknown]
  - Weight increased [Unknown]
